FAERS Safety Report 9009136 (Version 1)
Quarter: 2013Q1

REPORT INFORMATION
  Report Type: Spontaneous
  Country: CN (occurrence: CN)
  Receive Date: 20130111
  Receipt Date: 20130111
  Transmission Date: 20140127
  Serious: Yes (Other)
  Sender: FDA-Public Use
  Company Number: CN-BAXTER-2013BAX001065

PATIENT
  Age: 77 Year
  Sex: Male
  Weight: 58 kg

DRUGS (11)
  1. MANNITOL [Suspect]
     Indication: CEREBRAL INFARCTION
     Route: 042
     Dates: start: 20110205
  2. MANNITOL [Suspect]
     Indication: INTRACRANIAL PRESSURE INCREASED
     Route: 042
  3. EDARAVONE [Suspect]
     Indication: CEREBRAL INFARCTION
     Route: 042
  4. EDARAVONE [Suspect]
     Indication: INTRACRANIAL PRESSURE INCREASED
  5. AMINOPYRINE [Suspect]
     Indication: LUNG INFECTION
     Route: 030
  6. DICLOFENAC [Suspect]
     Indication: LUNG INFECTION
     Route: 054
  7. FUROSEMIDE [Concomitant]
     Indication: CEREBRAL INFARCTION
     Route: 042
  8. FUROSEMIDE [Concomitant]
     Indication: INTRACRANIAL PRESSURE INCREASED
  9. LEVOFLOXACIN [Concomitant]
     Indication: LUNG INFECTION
  10. CEFOPERAZONE\SULBACTAM [Concomitant]
     Indication: LUNG INFECTION
  11. HUMULIN REGULAR [Concomitant]
     Indication: DIABETES MELLITUS
     Route: 065

REACTIONS (1)
  - Renal failure acute [Recovered/Resolved]
